FAERS Safety Report 13320253 (Version 1)
Quarter: 2017Q1

REPORT INFORMATION
  Report Type: Spontaneous
  Country: JP (occurrence: JP)
  Receive Date: 20170310
  Receipt Date: 20170310
  Transmission Date: 20170428
  Serious: Yes (Other)
  Sender: FDA-Public Use
  Company Number: JP-MYLANLABS-2017M1006862

PATIENT

DRUGS (5)
  1. FLAGYL [Concomitant]
     Active Substance: METRONIDAZOLE\METRONIDAZOLE HYDROCHLORIDE
     Indication: PRODUCT USED FOR UNKNOWN INDICATION
     Dosage: 250 MG, QID
     Route: 048
     Dates: start: 20170112, end: 20170124
  2. VANCOMYCIN MYLAN [Suspect]
     Active Substance: VANCOMYCIN
     Dosage: 0.25 DF, QID
     Route: 048
     Dates: start: 20170202, end: 20170215
  3. VANCOMYCIN MYLAN [Suspect]
     Active Substance: VANCOMYCIN
     Dosage: 0.25 DF, QD
     Route: 048
     Dates: start: 20170222
  4. VANCOMYCIN MYLAN [Suspect]
     Active Substance: VANCOMYCIN
     Indication: CLOSTRIDIUM TEST POSITIVE
     Dosage: 0.25 DF, QID
     Route: 048
     Dates: start: 20161209, end: 20161213
  5. VANCOMYCIN MYLAN [Suspect]
     Active Substance: VANCOMYCIN
     Dosage: 0.25 DF, BID
     Route: 048
     Dates: start: 20170216, end: 20170221

REACTIONS (1)
  - Clostridium difficile infection [Recovering/Resolving]

NARRATIVE: CASE EVENT DATE: 20170202
